FAERS Safety Report 4808829-2 (Version None)
Quarter: 2005Q4

REPORT INFORMATION
  Report Type: 
  Country: None (occurrence: None)
  Receive Date: 20051021
  Receipt Date: 20030722
  Transmission Date: 20060501
  Serious: Yes (Hospitalization)
  Sender: FDA-Public Use
  Company Number: JP_030701419

PATIENT
  Age: 23 Year
  Sex: Female
  Weight: 63 kg

DRUGS (6)
  1. ZYPREXA [Suspect]
     Indication: SCHIZOPHRENIA
     Dosage: 20 MG DAY
     Dates: start: 20030617, end: 20030711
  2. CHLORPROMAZINE HCL [Concomitant]
  3. NITRAZEPAM [Concomitant]
  4. SENNOSIDE A+B [Concomitant]
  5. ASPARA-CA (ASPARTATE CALCIUM) [Concomitant]
  6. ROCALTROL [Concomitant]

REACTIONS (2)
  - CONDITION AGGRAVATED [None]
  - THROMBOCYTOPENIA [None]
